FAERS Safety Report 8141837-5 (Version None)
Quarter: 2012Q1

REPORT INFORMATION
  Report Type: 
  Country: None (occurrence: None)
  Receive Date: 20120216
  Receipt Date: 20120210
  Transmission Date: 20120608
  Serious: Yes (Death, Hospitalization)
  Sender: FDA-Public Use
  Company Number: GB-ELI_LILLY_AND_COMPANY-GB201202002985

PATIENT
  Age: 67 Year
  Sex: Female

DRUGS (9)
  1. EFFIENT [Suspect]
     Indication: PERCUTANEOUS CORONARY INTERVENTION
     Dosage: 10 MG, QD
     Route: 048
     Dates: start: 20120127, end: 20120131
  2. ASPIRIN [Concomitant]
     Dosage: UNK, UNKNOWN
     Dates: start: 20120127
  3. BISOPROLOL FUMARATE [Concomitant]
     Dosage: UNK, UNKNOWN
  4. ENOXAPARIN [Concomitant]
     Dosage: UNK, UNKNOWN
  5. LANSOPRAZOLE [Concomitant]
     Dosage: UNK, UNKNOWN
  6. ROSUVASTATIN [Concomitant]
     Dosage: UNK, UNKNOWN
  7. LEVOTHYROXINE SODIUM [Concomitant]
     Dosage: UNK, UNKNOWN
  8. METOPROLOL TARTRATE [Concomitant]
     Dosage: UNK, UNKNOWN
  9. RAMIPRIL [Concomitant]
     Dosage: UNK, UNKNOWN

REACTIONS (3)
  - CEREBRAL HAEMORRHAGE [None]
  - CONFUSIONAL STATE [None]
  - CEREBRAL INFARCTION [None]
